FAERS Safety Report 12134129 (Version 2)
Quarter: 2016Q1

REPORT INFORMATION
  Report Type: Spontaneous
  Country: FR (occurrence: FR)
  Receive Date: 20160301
  Receipt Date: 20160317
  Transmission Date: 20160526
  Serious: Yes (Hospitalization)
  Sender: FDA-Public Use
  Company Number: FR-ASTRAZENECA-2016SE20795

PATIENT
  Age: 20221 Day
  Sex: Male
  Weight: 85 kg

DRUGS (6)
  1. KOMBOGLYZE [Suspect]
     Active Substance: METFORMIN HYDROCHLORIDE\SAXAGLIPTIN
     Indication: TYPE 2 DIABETES MELLITUS
     Dosage: 2.5 + 1000 MG BIDAILY
     Route: 048
     Dates: start: 20151201, end: 20160222
  2. PERINDOPRIL [Concomitant]
     Active Substance: PERINDOPRIL
     Indication: HYPERTENSION
     Dates: start: 2012
  3. KARDEGIC [Concomitant]
     Active Substance: ASPIRIN LYSINE
     Dates: start: 2012
  4. PROCORALAN [Concomitant]
     Active Substance: IVABRADINE
     Indication: TACHYCARDIA
     Dates: start: 2012
  5. PARIET [Concomitant]
     Active Substance: RABEPRAZOLE SODIUM
     Indication: GASTRITIS
     Dates: start: 2014
  6. CRESTOR [Concomitant]
     Active Substance: ROSUVASTATIN CALCIUM
     Dates: start: 2012

REACTIONS (3)
  - Increased appetite [Unknown]
  - Diabetes mellitus [Unknown]
  - Glycosylated haemoglobin increased [Unknown]

NARRATIVE: CASE EVENT DATE: 20151205
